FAERS Safety Report 6160389-2 (Version None)
Quarter: 2009Q2

REPORT INFORMATION
  Report Type: 
  Country: None (occurrence: None)
  Receive Date: 20090420
  Receipt Date: 20090414
  Transmission Date: 20091009
  Serious: Yes (Other)
  Sender: FDA-Public Use
  Company Number: FR-JNJFOC-20090303800

PATIENT
  Sex: Male

DRUGS (4)
  1. CONCERTA LP [Suspect]
     Indication: PSYCHOMOTOR HYPERACTIVITY
     Route: 048
  2. DERINOX [Interacting]
     Indication: INFLUENZA LIKE ILLNESS
     Route: 045
  3. TOPLEXIL [Suspect]
     Indication: DRUG USE FOR UNKNOWN INDICATION
     Route: 048
  4. AUGMENTIN '125' [Concomitant]
     Indication: INFLUENZA LIKE ILLNESS
     Route: 048

REACTIONS (5)
  - DRUG INTERACTION [None]
  - HYPERTENSION [None]
  - LOSS OF CONSCIOUSNESS [None]
  - MALAISE [None]
  - MIGRAINE [None]
